FAERS Safety Report 25970890 (Version 1)
Quarter: 2025Q4

REPORT INFORMATION
  Report Type: Report from Study
  Country: US (occurrence: US)
  Receive Date: 20251028
  Receipt Date: 20251028
  Transmission Date: 20260118
  Serious: Yes (Other)
  Sender: VERONA PHARMA
  Company Number: US-VERONA PHARMA-VER-009883

PATIENT
  Sex: Female
  Weight: 86.18 kg

DRUGS (4)
  1. OHTUVAYRE [Suspect]
     Active Substance: ENSIFENTRINE
     Indication: Chronic obstructive pulmonary disease
     Dosage: 3 MILLIGRAM, BID
     Dates: start: 20250711, end: 20251015
  2. ARFORMOTEROL [Concomitant]
     Active Substance: ARFORMOTEROL
     Indication: Product used for unknown indication
  3. BUDESONIDE [Concomitant]
     Active Substance: BUDESONIDE
     Indication: Product used for unknown indication
  4. YUPELRI [Concomitant]
     Active Substance: REVEFENACIN
     Indication: Product used for unknown indication

REACTIONS (4)
  - Urinary retention [Unknown]
  - Infection [Unknown]
  - Vision blurred [Unknown]
  - Headache [Unknown]

NARRATIVE: CASE EVENT DATE: 20250101
